FAERS Safety Report 9790610 (Version 1)
Quarter: 2013Q4

REPORT INFORMATION
  Report Type: Spontaneous
  Country: US (occurrence: US)
  Receive Date: 20131231
  Receipt Date: 20131231
  Transmission Date: 20140711
  Serious: No
  Sender: FDA-Public Use
  Company Number: US-TEVA-452395USA

PATIENT
  Age: 43 Year
  Sex: Female
  Weight: 116.22 kg

DRUGS (9)
  1. PARAGARD 380A [Suspect]
     Indication: CONTRACEPTION
     Route: 015
     Dates: start: 20121211, end: 20131217
  2. NEXIUM [Concomitant]
  3. CELEXA [Concomitant]
  4. VESICARE [Concomitant]
  5. TOPAMAX [Concomitant]
  6. TOPROL XL [Concomitant]
  7. LISINOPRIL [Concomitant]
  8. LIPITOR [Concomitant]
  9. REGLAN [Concomitant]

REACTIONS (1)
  - Device expulsion [Recovered/Resolved]
